FAERS Safety Report 8354133-8 (Version None)
Quarter: 2012Q2

REPORT INFORMATION
  Report Type: 
  Country: None (occurrence: None)
  Receive Date: 20120511
  Receipt Date: 20120427
  Transmission Date: 20120825
  Serious: Yes (Hospitalization)
  Sender: FDA-Public Use
  Company Number: DE-AMGEN-DEUSP2012027592

PATIENT
  Age: 62 Year
  Sex: Female

DRUGS (5)
  1. ARAVA [Concomitant]
     Dosage: UNK
  2. BISOPROLOL FUMARATE [Concomitant]
     Dosage: UNK
  3. OMEPRAZOLE [Concomitant]
     Dosage: UNK
  4. RAMIPRIL [Concomitant]
     Dosage: UNK
  5. ENBREL [Suspect]
     Indication: RHEUMATOID ARTHRITIS
     Dosage: 50 MG, WEEKLY
     Route: 058
     Dates: start: 20091001, end: 20120227

REACTIONS (3)
  - IMPAIRED HEALING [None]
  - CYST [None]
  - WOUND INFECTION [None]
